FAERS Safety Report 24062590 (Version 1)
Quarter: 2024Q3

REPORT INFORMATION
  Report Type: Spontaneous
  Country: CN (occurrence: CN)
  Receive Date: 20240708
  Receipt Date: 20240708
  Transmission Date: 20241017
  Serious: Yes (Hospitalization)
  Sender: ELI LILLY AND CO
  Company Number: CN-ELI_LILLY_AND_COMPANY-CN202406018571

PATIENT

DRUGS (9)
  1. HUMALOG [Suspect]
     Active Substance: INSULIN LISPRO
     Indication: Diabetes mellitus
     Dosage: 8 U, EACH MORNING
     Route: 058
     Dates: start: 2014
  2. HUMALOG [Suspect]
     Active Substance: INSULIN LISPRO
     Dosage: 6 U, DAILY (NOON)
     Route: 058
     Dates: start: 2014
  3. HUMALOG [Suspect]
     Active Substance: INSULIN LISPRO
     Dosage: 6 U, EACH EVENING
     Route: 058
     Dates: start: 2014
  4. HUMALOG [Suspect]
     Active Substance: INSULIN LISPRO
     Dosage: 10 U, EACH MORNING
     Route: 058
  5. HUMALOG [Suspect]
     Active Substance: INSULIN LISPRO
     Dosage: 8 U, DAILY (NOON)
     Route: 058
  6. HUMALOG [Suspect]
     Active Substance: INSULIN LISPRO
     Dosage: 8 U, EACH EVENING
     Route: 058
  7. HUMULIN R [Suspect]
     Active Substance: INSULIN HUMAN
     Indication: Diabetes mellitus
     Dosage: UNK UNK, EACH EVENING (BEFORE BED)
     Route: 058
     Dates: start: 2014
  8. HUMULIN R [Suspect]
     Active Substance: INSULIN HUMAN
     Dosage: 10 U, EACH EVENING (BEFORE BED)
     Route: 058
  9. ACARBOSE [Concomitant]
     Active Substance: ACARBOSE
     Indication: Product used for unknown indication

REACTIONS (3)
  - Eye disorder [Unknown]
  - Cataract [Recovering/Resolving]
  - Blood glucose abnormal [Recovering/Resolving]

NARRATIVE: CASE EVENT DATE: 20190101
